FAERS Safety Report 18320855 (Version 1)
Quarter: 2020Q3

REPORT INFORMATION
  Report Type: Report from Study
  Country: US (occurrence: US)
  Receive Date: 20200928
  Receipt Date: 20200928
  Transmission Date: 20201103
  Serious: Yes (Hospitalization, Other)
  Sender: FDA-Public Use
  Company Number: US-JNJFOC-A-NJ2017-150789

PATIENT
  Age: 64 Year
  Sex: Female
  Weight: 90.7 kg

DRUGS (13)
  1. METOPROLOL. [Suspect]
     Active Substance: METOPROLOL
     Indication: PRODUCT USED FOR UNKNOWN INDICATION
     Route: 065
  2. POTASSIUM [Concomitant]
     Active Substance: POTASSIUM
  3. TRACLEER [Suspect]
     Active Substance: BOSENTAN
     Dosage: 125 MG, BID
     Route: 048
  4. LASIX [Concomitant]
     Active Substance: FUROSEMIDE
  5. TRAZODONE [Concomitant]
     Active Substance: TRAZODONE HYDROCHLORIDE
  6. ADCIRCA [Concomitant]
     Active Substance: TADALAFIL
  7. REQUIP [Concomitant]
     Active Substance: ROPINIROLE HYDROCHLORIDE
     Indication: RESTLESS LEGS SYNDROME
  8. TRACLEER [Suspect]
     Active Substance: BOSENTAN
     Indication: PULMONARY ARTERIAL HYPERTENSION
     Dosage: 125 MG, BID
     Route: 048
  9. AZITHROMYCIN ANHYDROUS. [Suspect]
     Active Substance: AZITHROMYCIN ANHYDROUS
     Indication: SINUSITIS
     Route: 065
  10. OXYGEN. [Concomitant]
     Active Substance: OXYGEN
  11. ORENITRAM [Concomitant]
     Active Substance: TREPROSTINIL
  12. LOSARTAN. [Concomitant]
     Active Substance: LOSARTAN
  13. TADALAFIL. [Concomitant]
     Active Substance: TADALAFIL

REACTIONS (25)
  - Weight decreased [Unknown]
  - Heart rate irregular [Unknown]
  - Irritable bowel syndrome [Unknown]
  - Headache [Unknown]
  - Hypotension [Unknown]
  - Sinus headache [Unknown]
  - Abdominal discomfort [Unknown]
  - Depression [Unknown]
  - Arrhythmia [Unknown]
  - Nausea [Unknown]
  - Infection [Unknown]
  - Fatigue [Unknown]
  - Oesophageal rupture [Unknown]
  - Sinusitis [Unknown]
  - Nasal congestion [Unknown]
  - Dizziness [Unknown]
  - Oesophageal haemorrhage [Unknown]
  - Heart rate decreased [Unknown]
  - Gastric haemorrhage [Unknown]
  - Haematemesis [Unknown]
  - Insomnia [Unknown]
  - Diarrhoea [Unknown]
  - Paranasal sinus discomfort [Unknown]
  - Anxiety [Unknown]
  - Restless legs syndrome [Unknown]
